FAERS Safety Report 11662274 (Version 1)
Quarter: 2015Q4

REPORT INFORMATION
  Report Type: Spontaneous
  Country: BR (occurrence: BR)
  Receive Date: 20151027
  Receipt Date: 20151027
  Transmission Date: 20160304
  Serious: Yes (Death, Hospitalization)
  Sender: FDA-Public Use
  Company Number: PHHY2015BR136089

PATIENT
  Age: 23 Year
  Sex: Male

DRUGS (14)
  1. PHENYTOIN. [Suspect]
     Active Substance: PHENYTOIN
     Indication: CRYPTOCOCCOSIS
     Route: 065
  2. PHENYTOIN. [Suspect]
     Active Substance: PHENYTOIN
     Indication: HIV INFECTION
  3. INSULIN [Suspect]
     Active Substance: INSULIN NOS
     Indication: HIV INFECTION
  4. FLUCONAZOLE. [Suspect]
     Active Substance: FLUCONAZOLE
     Indication: CRYPTOCOCCOSIS
     Route: 065
  5. PYRIMETHAMINE [Suspect]
     Active Substance: PYRIMETHAMINE
     Indication: CRYPTOCOCCOSIS
     Route: 065
  6. SULFADIAZINE. [Suspect]
     Active Substance: SULFADIAZINE
     Indication: CRYPTOCOCCOSIS
     Route: 065
  7. INSULIN [Suspect]
     Active Substance: INSULIN NOS
     Indication: CRYPTOCOCCOSIS
     Route: 065
  8. FLUCONAZOLE. [Suspect]
     Active Substance: FLUCONAZOLE
     Indication: HIV INFECTION
  9. AMPHOTERICIN B. [Suspect]
     Active Substance: AMPHOTERICIN B
     Indication: CRYPTOCOCCOSIS
     Route: 065
  10. SULFADIAZINE. [Suspect]
     Active Substance: SULFADIAZINE
     Indication: HIV INFECTION
  11. PYRIMETHAMINE [Suspect]
     Active Substance: PYRIMETHAMINE
     Indication: HIV INFECTION
  12. AMPHOTERICIN B. [Suspect]
     Active Substance: AMPHOTERICIN B
     Indication: HIV INFECTION
  13. FOLINIC ACID [Suspect]
     Active Substance: LEUCOVORIN
     Indication: CRYPTOCOCCOSIS
     Route: 065
  14. FOLINIC ACID [Suspect]
     Active Substance: LEUCOVORIN
     Indication: HIV INFECTION

REACTIONS (4)
  - Disease progression [Fatal]
  - Drug ineffective [Fatal]
  - Hypotension [Unknown]
  - Cryptococcosis [Fatal]
